FAERS Safety Report 7023279-9 (Version None)
Quarter: 2010Q3

REPORT INFORMATION
  Report Type: 
  Country: None (occurrence: None)
  Receive Date: 20100916
  Receipt Date: 20100712
  Transmission Date: 20110219
  Serious: No
  Sender: FDA-Public Use
  Company Number: DKLU1063599

PATIENT
  Age: 4 Year
  Sex: Male

DRUGS (5)
  1. SABRIL [Suspect]
     Indication: TEMPORAL LOBE EPILEPSY
     Dosage: 1000 MG MILLIGRAM(S), 2 IN 1 D ORAL
     Route: 048
     Dates: start: 20100423
  2. PREVACID [Concomitant]
  3. KLONOPIN [Concomitant]
  4. LACTULOSE [Concomitant]
  5. CHILDRENS ZYRTEC SOLUTION (CETIRIZINE HYDROCHLORIDE) [Concomitant]

REACTIONS (2)
  - ANAL CANDIDIASIS [None]
  - ORAL CANDIDIASIS [None]
